FAERS Safety Report 7202180-1 (Version None)
Quarter: 2010Q4

REPORT INFORMATION
  Report Type: 
  Country: None (occurrence: None)
  Receive Date: 20101229
  Receipt Date: 20101216
  Transmission Date: 20110411
  Serious: Yes (Other)
  Sender: FDA-Public Use
  Company Number: PHHY2010IT87328

PATIENT
  Age: 30 Year
  Sex: Male

DRUGS (1)
  1. OXCARBAZEPINE [Suspect]
     Indication: COMPLEX PARTIAL SEIZURES
     Dosage: 1500 MG DAILY

REACTIONS (6)
  - BLOOD FOLLICLE STIMULATING HORMONE DECREASED [None]
  - BLOOD LUTEINISING HORMONE DECREASED [None]
  - BLOOD TESTOSTERONE DECREASED [None]
  - INFERTILITY [None]
  - SPERM COUNT DECREASED [None]
  - SPERMATOZOA PROGRESSIVE MOTILITY DECREASED [None]
